FAERS Safety Report 9051192 (Version 1)
Quarter: 2013Q1

REPORT INFORMATION
  Report Type: Report from Study
  Country: DE (occurrence: DE)
  Receive Date: 20130206
  Receipt Date: 20130206
  Transmission Date: 20140127
  Serious: Yes (Hospitalization)
  Sender: FDA-Public Use
  Company Number: DE-BRISTOL-MYERS SQUIBB COMPANY-16405078

PATIENT
  Age: 48 Year
  Sex: Male
  Weight: 60 kg

DRUGS (7)
  1. ERBITUX SOLN FOR INF [Suspect]
     Indication: COLORECTAL CANCER METASTATIC
     Dosage: ONCE. 250MG/M2:16AUG-4OCT11,400MG/M2:10-10JAN2012,250MG/M2:17JAN12 TO ONG,REC DOSE: 4OCT11.
     Route: 042
     Dates: start: 20110809
  2. 5-FLUOROURACIL [Concomitant]
     Indication: COLORECTAL CANCER METASTATIC
     Dosage: LONG TERM INF: 2000MG
     Route: 042
     Dates: start: 20110809
  3. IRINOTECAN [Concomitant]
     Indication: COLORECTAL CANCER METASTATIC
     Route: 042
     Dates: start: 20110809
  4. FOLINIC ACID [Concomitant]
     Indication: COLORECTAL CANCER METASTATIC
     Route: 042
     Dates: start: 20110809
  5. PARACETAMOL [Concomitant]
     Route: 048
     Dates: start: 20110809, end: 20110816
  6. CORTICOSTEROID [Concomitant]
     Indication: PREMEDICATION
     Route: 042
     Dates: start: 20110809, end: 20110816
  7. ANTIHISTAMINE DRUGS [Concomitant]
     Indication: PREMEDICATION
     Dosage: FORM: H1 ANTIHISTAMINE DRUG
     Dates: start: 20110809, end: 20110816

REACTIONS (1)
  - Hepatectomy [Recovered/Resolved]
